FAERS Safety Report 8240464-9 (Version None)
Quarter: 2012Q1

REPORT INFORMATION
  Report Type: 
  Country: None (occurrence: None)
  Receive Date: 20120328
  Receipt Date: 20120321
  Transmission Date: 20120608
  Serious: Yes (Hospitalization)
  Sender: FDA-Public Use
  Company Number: FR-ROCHE-683730

PATIENT
  Sex: Female
  Weight: 73 kg

DRUGS (2)
  1. HERCEPTIN [Suspect]
     Indication: BREAST CANCER
     Dosage: DOSAGE FORM: VIALS. DOSE LEVEL: 8 MG/KG. LAST DOSE PRIOR TO SAE: 21 JAN 2010
     Route: 042
  2. DOCETAXEL [Suspect]
     Indication: BREAST CANCER
     Dosage: DOSAGE FORM: VIALS. DOSE LEVEL: 100 MG/M2. LAST DOSE PRIOR TO SAE: 21 JAN 2010
     Route: 042

REACTIONS (2)
  - FEBRILE BONE MARROW APLASIA [None]
  - FEBRILE NEUTROPENIA [None]
